FAERS Safety Report 6999549-7 (Version None)
Quarter: 2010Q3

REPORT INFORMATION
  Report Type: 
  Country: None (occurrence: None)
  Receive Date: 20100920
  Receipt Date: 20070320
  Transmission Date: 20110219
  Serious: Yes (Hospitalization)
  Sender: FDA-Public Use
  Company Number: US-ASTRAZENECA-2006UW07030

PATIENT
  Age: 37 Year
  Sex: Female
  Weight: 71.2 kg

DRUGS (21)
  1. SEROQUEL [Suspect]
     Indication: SCHIZOPHRENIA
     Route: 048
     Dates: start: 19991101, end: 20021001
  2. SEROQUEL [Suspect]
     Indication: DELUSION
     Route: 048
     Dates: start: 19991101, end: 20021001
  3. SEROQUEL [Suspect]
     Indication: PSYCHOTIC DISORDER
     Route: 048
     Dates: start: 19991101, end: 20021001
  4. SEROQUEL [Suspect]
     Indication: PARANOIA
     Route: 048
     Dates: start: 19991101, end: 20021001
  5. SEROQUEL [Suspect]
     Dosage: 25-600 MG
     Route: 048
     Dates: start: 20001130
  6. SEROQUEL [Suspect]
     Dosage: 25-600 MG
     Route: 048
     Dates: start: 20001130
  7. SEROQUEL [Suspect]
     Dosage: 25-600 MG
     Route: 048
     Dates: start: 20001130
  8. SEROQUEL [Suspect]
     Dosage: 25-600 MG
     Route: 048
     Dates: start: 20001130
  9. ABILIFY [Concomitant]
  10. CLOZARIL [Concomitant]
  11. GEODON [Concomitant]
  12. HALDOL [Concomitant]
  13. RISPERDAL [Concomitant]
     Dosage: 2-3 MG
     Dates: start: 20020101
  14. STELAZINE [Concomitant]
     Dates: start: 20010101
  15. THORAZINE [Concomitant]
  16. ZYPREXA [Concomitant]
     Dosage: 10-20 MG
     Dates: start: 19980101
  17. VISTARIL [Concomitant]
     Indication: ANXIETY
     Dosage: 25-50 MG
     Dates: start: 19981218
  18. TRAZODONE HCL [Concomitant]
     Indication: ANXIETY
     Dates: start: 20000721
  19. DIFLUCAN [Concomitant]
     Dates: start: 20001130
  20. GLUCOPHAGE [Concomitant]
     Dates: start: 20010405
  21. CELEXA [Concomitant]
     Indication: DEPRESSION
     Dosage: 10-40 MG
     Dates: start: 20020124

REACTIONS (2)
  - TYPE 2 DIABETES MELLITUS [None]
  - WEIGHT INCREASED [None]
